FAERS Safety Report 9438755 (Version 1)
Quarter: 2013Q3

REPORT INFORMATION
  Report Type: Spontaneous
  Country: RO (occurrence: RO)
  Receive Date: 20130802
  Receipt Date: 20130802
  Transmission Date: 20140515
  Serious: Yes (Other)
  Sender: FDA-Public Use
  Company Number: RO-ACTAVIS-2013-13136

PATIENT
  Age: 26 Year
  Sex: Female

DRUGS (21)
  1. MONTELUKAST [Suspect]
     Indication: ASTHMA
     Dosage: UNK
     Route: 065
  2. CYCLOPHOSPHAMIDE (UNKNOWN) [Suspect]
     Indication: ASTHMA
     Dosage: MONTHLY  PULSES OF 600 MG PER SQUARE METER
     Route: 042
  3. CYCLOPHOSPHAMIDE (UNKNOWN) [Suspect]
     Indication: IMMUNOSUPPRESSANT DRUG THERAPY
  4. METHYLPREDNISOLONE (UNKNOWN) [Suspect]
     Indication: ANTIINFLAMMATORY THERAPY
     Dosage: LOW TO MODERATE DAILY DOSES AND LOW TO HIGH-DOSE PULSES DURING EXACERBATIONS
     Route: 042
  5. METHYLPREDNISOLONE (UNKNOWN) [Suspect]
     Dosage: PULSE THERAPY, TOTAL DOSE 3 GRAMS, DIVIDED OVER 6 DAYS
     Route: 065
  6. METHYLPREDNISOLONE (UNKNOWN) [Suspect]
     Dosage: 0.8 MG/KG, DAILY
     Route: 065
  7. METHYLPREDNISOLONE (UNKNOWN) [Suspect]
     Dosage: PULSE THERAPY, TOTAL DOSE 5 GRAMS, TAPERED WITH LOW ORAL DOSES
     Route: 065
  8. METHYLPREDNISOLONE (UNKNOWN) [Suspect]
     Dosage: PULSE THERAPY, TOTAL DOSE 1 GRAM, DIVIDED OVER 4 DAYS
     Route: 065
  9. METHYLPREDNISOLONE (UNKNOWN) [Suspect]
     Dosage: TOTAL DOSE 1.5 GRAMS, DIVIDED OVER 3 DAYS
     Route: 065
  10. HYDROXYCHLOROQUINE SULFATE (WATSON LABORATORIES) [Suspect]
     Indication: IMMUNOMODULATORY THERAPY
     Dosage: 400 MG, DAILY
     Route: 065
  11. METHOTREXATE (UNKNOWN) [Suspect]
     Indication: IMMUNOSUPPRESSANT DRUG THERAPY
     Dosage: UP TO 20 MG PER WEEK
     Route: 065
  12. ACENOCOUMAROL (UNKNOWN) [Suspect]
     Indication: ANTICOAGULANT THERAPY
     Dosage: UNK
     Route: 065
  13. PHENYTOIN (AMALLC) [Suspect]
     Indication: CONVULSION
     Dosage: 100 MG, Q6H
     Route: 042
  14. THEOPHYLLINE [Suspect]
     Indication: ASTHMA
     Dosage: UNK UNK, UNKNOWN
     Route: 065
  15. ENOXAPARIN [Suspect]
     Indication: ANTICOAGULANT THERAPY
     Dosage: 1 MG/KG EVERY 12 HOURS
     Route: 058
  16. TIOTROPIUM BROMIDE [Suspect]
     Indication: ASTHMA
     Dosage: UNK
     Route: 065
  17. SODIUM VALPROATE [Concomitant]
     Indication: CONVULSION
     Dosage: 2000 MG, DAILY
     Route: 065
  18. ACETAMINOPHEN [Concomitant]
     Indication: HEADACHE
     Dosage: UNK
     Route: 065
  19. LEVETIRACETAM [Concomitant]
     Indication: CONVULSION
     Dosage: 1000 MG, DAILY
     Route: 048
  20. MANNITOL [Concomitant]
     Indication: PRODUCT USED FOR UNKNOWN INDICATION
     Dosage: UNK
     Route: 065
  21. MIDAZOLAM [Concomitant]
     Indication: PRODUCT USED FOR UNKNOWN INDICATION
     Dosage: UNK
     Route: 065

REACTIONS (17)
  - Staphylococcal sepsis [Recovered/Resolved]
  - Cerebellar atrophy [Unknown]
  - Thrombocytopenia [Recovered/Resolved]
  - Interstitial lung disease [Unknown]
  - Alveolitis [Unknown]
  - Hypercorticoidism [Unknown]
  - Liver disorder [Unknown]
  - Nephropathy [Unknown]
  - Gastritis [Unknown]
  - Thrombosis [Unknown]
  - Withdrawal syndrome [Unknown]
  - Escherichia urinary tract infection [Recovered/Resolved]
  - Cholecystitis acute [Recovered/Resolved]
  - Clostridium difficile colitis [Recovered/Resolved]
  - Urinary retention [Unknown]
  - Bacterial infection [Unknown]
  - Oral herpes [Unknown]
